FAERS Safety Report 4714597-5 (Version None)
Quarter: 2005Q3

REPORT INFORMATION
  Report Type: 
  Country: None (occurrence: None)
  Receive Date: 20050714
  Receipt Date: 20050714
  Transmission Date: 20060218
  Serious: Yes (Life-Threatening)
  Sender: FDA-Public Use
  Company Number: None

PATIENT
  Age: 85 Year
  Sex: Male
  Weight: 90.7194 kg

DRUGS (1)
  1. XALATAN [Suspect]
     Indication: GLAUCOMA
     Dosage: 1 DROP EA. EYE  EA. NIGHT
     Dates: start: 20050601, end: 20050609

REACTIONS (3)
  - ABDOMINAL PAIN [None]
  - ANGINA PECTORIS [None]
  - BACK PAIN [None]
